FAERS Safety Report 5023330-1 (Version None)
Quarter: 2006Q2

REPORT INFORMATION
  Report Type: 
  Country: None (occurrence: None)
  Receive Date: 20060606
  Receipt Date: 20060522
  Transmission Date: 20061013
  Serious: Yes (Hospitalization)
  Sender: FDA-Public Use
  Company Number: 2006BH010443

PATIENT
  Age: 55 Year
  Sex: Male

DRUGS (14)
  1. SODIUM CHLORIDE [Suspect]
     Indication: BRONCHITIS
     Dosage: 250 ML; ONCE; IV
     Route: 042
     Dates: start: 20060508, end: 20060508
  2. SOLU-MEDROL [Suspect]
     Indication: BRONCHITIS
     Dosage: 40 MG; ONCE; IV
     Route: 042
     Dates: start: 20060508, end: 20060508
  3. SYNTHOPHYLLIN (AMINOPHYLLINE) [Suspect]
     Indication: BRONCHITIS
     Dosage: 1 VIAL; ONCE; IV
     Route: 042
     Dates: start: 20060508, end: 20060508
  4. CERUCAL [Concomitant]
  5. ISOPTIN [Concomitant]
  6. SINGULAIR [Concomitant]
  7. OXIS [Concomitant]
  8. SYMBICORT TURBUHALER  DRACO [Concomitant]
  9. FURON [Concomitant]
  10. PREDNISONE [Concomitant]
  11. TRITACE [Concomitant]
  12. ANOPYRIN [Concomitant]
  13. SPIRIVA [Concomitant]
  14. QUAMATEL [Concomitant]

REACTIONS (6)
  - BODY TEMPERATURE INCREASED [None]
  - CHILLS [None]
  - DYSPNOEA [None]
  - OXYGEN SATURATION DECREASED [None]
  - TREMOR [None]
  - WHEEZING [None]
